FAERS Safety Report 16844270 (Version 2)
Quarter: 2019Q4

REPORT INFORMATION
  Report Type: Spontaneous
  Country: IR (occurrence: IR)
  Receive Date: 20190924
  Receipt Date: 20191107
  Transmission Date: 20200122
  Serious: Yes (Hospitalization, Other)
  Sender: FDA-Public Use
  Company Number: IR-MACLEODS PHARMACEUTICALS US LTD-MAC2019023018

PATIENT

DRUGS (2)
  1. SILDENAFIL. [Concomitant]
     Active Substance: SILDENAFIL
     Indication: PREMATURE EJACULATION
     Dosage: UNK
     Route: 065
  2. TRAMADOL HYDROCHLORIDE. [Suspect]
     Active Substance: TRAMADOL HYDROCHLORIDE
     Indication: PREMATURE EJACULATION
     Dosage: UNK
     Route: 065

REACTIONS (3)
  - Joint dislocation [Recovered/Resolved]
  - Generalised tonic-clonic seizure [Recovered/Resolved]
  - Intentional product misuse [Recovered/Resolved]
